FAERS Safety Report 7110936-9 (Version None)
Quarter: 2010Q4

REPORT INFORMATION
  Report Type: 
  Country: None (occurrence: None)
  Receive Date: 20101112
  Receipt Date: 20100525
  Transmission Date: 20110411
  Serious: Yes (Death, Hospitalization)
  Sender: FDA-Public Use
  Company Number: 012092

PATIENT
  Sex: Female
  Weight: 54.6 kg

DRUGS (23)
  1. CIMZIA [Suspect]
     Indication: CROHN'S DISEASE
     Dosage: (SUBCUTANEOUS)
     Route: 058
     Dates: start: 20100210, end: 20100225
  2. PENTASA [Concomitant]
  3. COREG [Concomitant]
  4. ZOSYN [Concomitant]
  5. FLAGYL [Concomitant]
  6. CLONAZEPAM [Concomitant]
  7. ONDANSETRON [Concomitant]
  8. PROCHLORPERAZINE [Concomitant]
  9. ACEPROMETAZINE [Concomitant]
  10. FENTANYL [Concomitant]
  11. ESOMEPRAZOLE [Concomitant]
  12. IRON [Concomitant]
  13. HEPARIN [Concomitant]
  14. FLUCONAZOLE [Concomitant]
  15. DULOXETINE [Concomitant]
  16. ENALAPRIL [Concomitant]
  17. METOPROLOL LASIX /00032601/ [Concomitant]
  18. OXYGEN [Concomitant]
  19. DOPAMINE [Concomitant]
  20. DOBUTAMINE [Concomitant]
  21. NOREPINEPHRINE [Concomitant]
  22. DURAGESIC-100 [Concomitant]
  23. OXYCODONE HCL [Concomitant]

REACTIONS (40)
  - ABDOMINAL PAIN [None]
  - BACTERAEMIA [None]
  - BLOOD CALCIUM DECREASED [None]
  - CARDIAC DISORDER [None]
  - CARDIAC FAILURE [None]
  - CONDITION AGGRAVATED [None]
  - CROHN'S DISEASE [None]
  - DEPRESSION [None]
  - DIARRHOEA [None]
  - DISEASE COMPLICATION [None]
  - DIZZINESS [None]
  - DYSARTHRIA [None]
  - ELECTROCARDIOGRAM POOR R-WAVE PROGRESSION [None]
  - ELECTROCARDIOGRAM QRS COMPLEX SHORTENED [None]
  - ENTEROCOCCAL BACTERAEMIA [None]
  - HAEMATOCRIT DECREASED [None]
  - HAEMOGLOBIN DECREASED [None]
  - HYPOTENSION [None]
  - INJECTION SITE REACTION [None]
  - INTESTINAL FISTULA [None]
  - LABILE BLOOD PRESSURE [None]
  - LACTIC ACIDOSIS [None]
  - MALNUTRITION [None]
  - MEAN CELL VOLUME DECREASED [None]
  - MELAENA [None]
  - NAUSEA [None]
  - OVARIAN CYST [None]
  - PLEURAL EFFUSION [None]
  - PROTEUS INFECTION [None]
  - PYREXIA [None]
  - RESPIRATORY DISTRESS [None]
  - SINUS TACHYCARDIA [None]
  - SOMNOLENCE [None]
  - STREPTOCOCCAL BACTERAEMIA [None]
  - SWELLING FACE [None]
  - TOOTH FRACTURE [None]
  - TOOTHACHE [None]
  - TREATMENT NONCOMPLIANCE [None]
  - URINARY TRACT INFECTION [None]
  - VOMITING [None]
